FAERS Safety Report 7217289-6 (Version None)
Quarter: 2011Q1

REPORT INFORMATION
  Report Type: 
  Country: None (occurrence: None)
  Receive Date: 20110110
  Receipt Date: 20101231
  Transmission Date: 20110831
  Serious: Yes (Other)
  Sender: FDA-Public Use
  Company Number: US-PFIZER INC-2011000436

PATIENT
  Age: 24 Year
  Sex: Female
  Weight: 61.224 kg

DRUGS (3)
  1. LYRICA [Suspect]
     Indication: FIBROMYALGIA
     Dosage: 225 MG, 2X/DAY
     Route: 048
     Dates: start: 20080101
  2. MAGNESIUM [Concomitant]
     Dosage: UNK
  3. AMITRIPTYLINE [Concomitant]
     Dosage: 25 MG, UNK

REACTIONS (5)
  - URTICARIA [None]
  - RASH [None]
  - BLISTER [None]
  - BLISTER INFECTED [None]
  - RASH PRURITIC [None]
